FAERS Safety Report 12051207 (Version 1)
Quarter: 2016Q1

REPORT INFORMATION
  Report Type: Spontaneous
  Country: GB (occurrence: GB)
  Receive Date: 20160209
  Receipt Date: 20160209
  Transmission Date: 20160526
  Serious: Yes (Hospitalization, Other)
  Sender: FDA-Public Use
  Company Number: GB-VELOXIS PHARMACEUTICALS-1047504

PATIENT
  Age: 65 Year
  Sex: Male

DRUGS (33)
  1. COLCHICINE. [Concomitant]
     Active Substance: COLCHICINE
  2. MAGNESIUM OXIDE. [Concomitant]
     Active Substance: MAGNESIUM OXIDE
  3. MYCOPHENOLATE MOFETIL. [Concomitant]
     Active Substance: MYCOPHENOLATE MOFETIL
  4. LOPERAMIDE [Concomitant]
     Active Substance: LOPERAMIDE
  5. MEROPENEM. [Concomitant]
     Active Substance: MEROPENEM
  6. ZOPICLONE [Concomitant]
     Active Substance: ZOPICLONE
  7. ENVARSUS XR [Suspect]
     Active Substance: TACROLIMUS
     Indication: PROPHYLAXIS AGAINST GRAFT VERSUS HOST DISEASE
     Route: 048
     Dates: start: 20151103, end: 20160114
  8. ALLOPURINOL. [Concomitant]
     Active Substance: ALLOPURINOL
  9. CICLOSPORIN [Concomitant]
     Active Substance: CYCLOSPORINE
  10. COTRIMOXAZOLE [Concomitant]
     Active Substance: SULFAMETHOXAZOLE\TRIMETHOPRIM
  11. CYCLOPHOSPHAMIDE. [Concomitant]
     Active Substance: CYCLOPHOSPHAMIDE
  12. FLUDARABINE [Concomitant]
     Active Substance: FLUDARABINE PHOSPHATE
  13. NYSTATIN. [Concomitant]
     Active Substance: NYSTATIN
  14. URSODEOXYCHOLIC ACID [Concomitant]
     Active Substance: URSODIOL
  15. CODEINE [Concomitant]
     Active Substance: CODEINE
  16. ERGOCALCIFEROL. [Concomitant]
     Active Substance: ERGOCALCIFEROL
  17. ETORICOXIB [Concomitant]
     Active Substance: ETORICOXIB
  18. FOLIC ACID. [Concomitant]
     Active Substance: FOLIC ACID
  19. FUROSEMIDE. [Concomitant]
     Active Substance: FUROSEMIDE
  20. ZARZIO [Concomitant]
     Active Substance: FILGRASTIM
  21. SINEMET [Concomitant]
     Active Substance: CARBIDOPA\LEVODOPA
  22. LANSOPRAZOLE. [Concomitant]
     Active Substance: LANSOPRAZOLE
  23. LEVOFLOXACIN. [Concomitant]
     Active Substance: LEVOFLOXACIN
  24. PARACETAMOL [Concomitant]
     Active Substance: ACETAMINOPHEN
  25. ACICLOVIR [Concomitant]
     Active Substance: ACYCLOVIR
  26. ORAMORPH [Concomitant]
     Active Substance: MORPHINE SULFATE
  27. ITRACONAZOLE. [Concomitant]
     Active Substance: ITRACONAZOLE
  28. PIPERACILLIN AND TAZOBACTAM [Concomitant]
     Active Substance: PIPERACILLIN SODIUM\TAZOBACTAM SODIUM
  29. POSACONAZOLE [Concomitant]
     Active Substance: POSACONAZOLE
  30. PREDNISOLONE. [Concomitant]
     Active Substance: PREDNISOLONE
  31. DEPO-MEDRONE [Concomitant]
     Active Substance: METHYLPREDNISOLONE
  32. DIPROBASE [Concomitant]
     Active Substance: CHLOROCRESOL
  33. MOMETASONE [Concomitant]
     Active Substance: MOMETASONE

REACTIONS (4)
  - Parkinsonism [Recovering/Resolving]
  - Catatonia [Unknown]
  - Infection [Unknown]
  - Product use issue [Unknown]

NARRATIVE: CASE EVENT DATE: 20151130
